FAERS Safety Report 7434094-6 (Version None)
Quarter: 2011Q2

REPORT INFORMATION
  Report Type: 
  Country: None (occurrence: None)
  Receive Date: 20110425
  Receipt Date: 20101109
  Transmission Date: 20111010
  Serious: No
  Sender: FDA-Public Use
  Company Number: US-MYLANLABS-2010S1020737

PATIENT
  Sex: Female

DRUGS (2)
  1. LORAZEPAM [Suspect]
     Indication: ANXIETY
     Route: 048
     Dates: start: 20090101, end: 20101101
  2. DOXEPIN [Concomitant]

REACTIONS (4)
  - FEELING ABNORMAL [None]
  - NERVOUSNESS [None]
  - TREMOR [None]
  - DRUG INEFFECTIVE [None]
